FAERS Safety Report 7924536-1 (Version None)
Quarter: 2011Q4

REPORT INFORMATION
  Report Type: 
  Country: None (occurrence: None)
  Receive Date: 20111117
  Receipt Date: 20110323
  Transmission Date: 20120403
  Serious: No
  Sender: FDA-Public Use
  Company Number: US-AMGEN-USASP2011015815

PATIENT
  Sex: Male

DRUGS (1)
  1. ENBREL [Suspect]
     Indication: ANKYLOSING SPONDYLITIS
     Dosage: 50 MG, QWK
     Dates: start: 20020101, end: 20100301

REACTIONS (5)
  - WALKING AID USER [None]
  - SPINAL DEFORMITY [None]
  - MOBILITY DECREASED [None]
  - SCIATIC NERVE NEUROPATHY [None]
  - BACK PAIN [None]
